FAERS Safety Report 4877100-5 (Version None)
Quarter: 2005Q4

REPORT INFORMATION
  Report Type: 
  Country: None (occurrence: None)
  Receive Date: 20051206
  Receipt Date: 20050823
  Transmission Date: 20060501
  Serious: No
  Sender: FDA-Public Use
  Company Number: USA0508106201

PATIENT
  Age: 52 Year
  Sex: Female
  Weight: 55.3388 kg

DRUGS (4)
  1. CYMBALTA [Suspect]
     Indication: DEPRESSION
     Dosage: 30 MG AT BEDTIME
     Dates: start: 20050818, end: 20050820
  2. VALTREX [Concomitant]
  3. ECHINACEA /01323501/ (ECHINACEA PURPUREA) [Concomitant]
  4. MULTI-VITAMIN [Concomitant]

REACTIONS (6)
  - ASTHENIA [None]
  - INITIAL INSOMNIA [None]
  - INSOMNIA [None]
  - MIDDLE INSOMNIA [None]
  - NAUSEA [None]
  - STOMACH DISCOMFORT [None]
